FAERS Safety Report 21737699 (Version 1)
Quarter: 2022Q4

REPORT INFORMATION
  Report Type: Spontaneous
  Country: US (occurrence: US)
  Receive Date: 20221216
  Receipt Date: 20221216
  Transmission Date: 20230112
  Serious: Yes (Hospitalization, Other)
  Sender: FDA-Public Use
  Company Number: US-MLMSERVICE-20221125-3941437-1

PATIENT
  Age: 54 Year
  Sex: Female

DRUGS (5)
  1. PREDNISONE [Suspect]
     Active Substance: PREDNISONE
     Indication: Product used for unknown indication
     Dosage: LOW-DOSE
     Route: 065
  2. HYDROXYCHLOROQUINE [Suspect]
     Active Substance: HYDROXYCHLOROQUINE
     Indication: Product used for unknown indication
     Dosage: LOW-DOSE
     Route: 065
  3. NIFEDIPINE [Concomitant]
     Active Substance: NIFEDIPINE
     Indication: Product used for unknown indication
     Dosage: UNK
     Route: 065
  4. INSULIN GLARGINE [Concomitant]
     Active Substance: INSULIN GLARGINE
     Indication: Product used for unknown indication
     Dosage: UNK
     Route: 065
  5. FUROSEMIDE [Concomitant]
     Active Substance: FUROSEMIDE
     Indication: Product used for unknown indication
     Dosage: UNK
     Route: 065

REACTIONS (10)
  - Thrombocytopenia [Unknown]
  - Tubulointerstitial nephritis [Recovering/Resolving]
  - Acute kidney injury [Recovered/Resolved]
  - Proteus infection [Unknown]
  - Pyelonephritis fungal [Recovering/Resolving]
  - Hypotension [Unknown]
  - Urinary tract candidiasis [Recovering/Resolving]
  - Systemic candida [Recovering/Resolving]
  - Acute respiratory failure [Unknown]
  - Anaemia [Unknown]
